FAERS Safety Report 6856099-6 (Version None)
Quarter: 2010Q3

REPORT INFORMATION
  Report Type: 
  Country: None (occurrence: None)
  Receive Date: 20100715
  Receipt Date: 20100715
  Transmission Date: 20110219
  Serious: No
  Sender: FDA-Public Use
  Company Number: None

PATIENT
  Age: 67 Year
  Sex: Male
  Weight: 114.76 kg

DRUGS (20)
  1. ACTIVASE [Suspect]
     Indication: THROMBOSIS IN DEVICE
     Dosage: 30MG AND 10 MG AT 3 MG/HR CONTINUOUS IV DRIP
     Route: 041
     Dates: start: 20100629, end: 20100630
  2. ACTIVASE [Suspect]
     Indication: THROMBOSIS IN DEVICE
     Dosage: 20MG, 1MG/HR CONTINUOUS IV DRIP
     Route: 041
     Dates: start: 20100630, end: 20100701
  3. DILTIAZEM [Concomitant]
  4. HEPARIN [Concomitant]
  5. ALBUTEROL NEB SOLUTION [Concomitant]
  6. BUDESONIDE [Concomitant]
  7. DIGOXIN [Concomitant]
  8. FUROSEMIDE [Concomitant]
  9. PANTOPRAZOLE [Concomitant]
  10. POTASSIUM CHLORIDE [Concomitant]
  11. ALLOPURINOL [Concomitant]
  12. ALPRAZOLAM [Concomitant]
  13. ARIPIPRAZOLE [Concomitant]
  14. ASCORBIC ACID [Concomitant]
  15. CLONAZEPAM [Concomitant]
  16. LORTAB [Concomitant]
  17. LEVOTHYROXINE SODIUM [Concomitant]
  18. METHOCARBAMOL [Concomitant]
  19. METOLAZONE [Concomitant]
  20. MIRTAZAPINE [Concomitant]

REACTIONS (3)
  - CEREBROVASCULAR ACCIDENT [None]
  - DEVICE MALFUNCTION [None]
  - VOMITING [None]
